FAERS Safety Report 17997016 (Version 1)
Quarter: 2020Q3

REPORT INFORMATION
  Report Type: Spontaneous
  Country: US (occurrence: US)
  Receive Date: 20200708
  Receipt Date: 20200708
  Transmission Date: 20201103
  Serious: Yes (Hospitalization, Other)
  Sender: FDA-Public Use
  Company Number: US-TAKEDA-2020TUS029445

PATIENT
  Age: 45 Year
  Sex: Male

DRUGS (1)
  1. ENTYVIO [Suspect]
     Active Substance: VEDOLIZUMAB
     Indication: COLITIS ULCERATIVE
     Dosage: UNK
     Route: 042

REACTIONS (6)
  - Fall [Unknown]
  - Liver abscess [Unknown]
  - Brain abscess [Unknown]
  - Intracranial pressure increased [Unknown]
  - Colitis ulcerative [Unknown]
  - Micrococcal sepsis [Unknown]

NARRATIVE: CASE EVENT DATE: 202004
